FAERS Safety Report 4388235-8 (Version None)
Quarter: 2004Q2

REPORT INFORMATION
  Report Type: 
  Country: None (occurrence: None)
  Receive Date: 20040625
  Receipt Date: 20040614
  Transmission Date: 20050107
  Serious: Yes (Hospitalization)
  Sender: FDA-Public Use
  Company Number: DSA_70291_2004

PATIENT
  Age: 64 Year
  Sex: Male

DRUGS (5)
  1. DARVOCET-N 100 [Suspect]
     Indication: BACK PAIN
     Dosage: 2 TAB DAILY PO
     Route: 048
     Dates: end: 20040520
  2. TYLENOL W/ CODEINE NO. 3 [Suspect]
     Indication: BACK PAIN
     Dosage: 2 TAB DAILY PO
     Route: 048
     Dates: start: 20040507, end: 20040520
  3. AMANTADINE HCL [Suspect]
     Indication: PARKINSON'S DISEASE
     Dates: end: 20040521
  4. SUMANIROLE [Suspect]
     Indication: PARKINSON'S DISEASE
     Dosage: 48 MG DAILY PO
     Route: 048
     Dates: start: 20040112, end: 20040522
  5. SUMANIROLE [Suspect]
     Indication: PARKINSON'S DISEASE
     Dosage: 24 MG DAILY PO
     Route: 048
     Dates: start: 20040525

REACTIONS (3)
  - ENCEPHALOPATHY [None]
  - HALLUCINATION, VISUAL [None]
  - PAIN EXACERBATED [None]
